FAERS Safety Report 18477695 (Version 2)
Quarter: 2020Q4

REPORT INFORMATION
  Report Type: Other
  Country: IL (occurrence: IL)
  Receive Date: 20201108
  Receipt Date: 20201201
  Transmission Date: 20210114
  Serious: Yes (Hospitalization)
  Sender: FDA-Public Use
  Company Number: IL-RECORDATI RARE DISEASES-2093694

PATIENT
  Age: 69 Year
  Sex: Female

DRUGS (8)
  1. SIGNIFOR LAR [Suspect]
     Active Substance: PASIREOTIDE PAMOATE
     Route: 050
     Dates: start: 20190120
  2. SIGNIFOR LAR [Suspect]
     Active Substance: PASIREOTIDE PAMOATE
     Route: 050
     Dates: start: 20190217
  3. SIGNIFOR LAR [Suspect]
     Active Substance: PASIREOTIDE PAMOATE
     Route: 050
     Dates: start: 20190416
  4. SIGNIFOR LAR [Suspect]
     Active Substance: PASIREOTIDE PAMOATE
     Indication: ACROMEGALY
     Dates: start: 20171217
  5. SIGNIFOR LAR [Suspect]
     Active Substance: PASIREOTIDE PAMOATE
     Route: 050
     Dates: start: 20190812
  6. SIGNIFOR LAR [Suspect]
     Active Substance: PASIREOTIDE PAMOATE
     Route: 050
     Dates: start: 20190320
  7. SIGNIFOR LAR [Suspect]
     Active Substance: PASIREOTIDE PAMOATE
     Route: 050
     Dates: start: 20190611
  8. SIGNIFOR LAR [Suspect]
     Active Substance: PASIREOTIDE PAMOATE
     Route: 050
     Dates: start: 20190709

REACTIONS (8)
  - Colitis [Recovering/Resolving]
  - Abdominal pain [Recovering/Resolving]
  - Pneumonia [Recovered/Resolved]
  - Diarrhoea [Unknown]
  - Pulmonary oedema [Unknown]
  - Asthenia [Unknown]
  - Dizziness [Unknown]
  - Pleural effusion [Recovered/Resolved]

NARRATIVE: CASE EVENT DATE: 20190327
